FAERS Safety Report 9513089 (Version 2)
Quarter: 2014Q1

REPORT INFORMATION
  Report Type: Spontaneous
  Country: US (occurrence: None)
  Receive Date: 20130305
  Receipt Date: 20140306
  Transmission Date: 20141002
  Serious: Yes (Other)
  Sender: FDA-Public Use
  Company Number: 163-21880-12102521

PATIENT
  Age: 85 Year
  Sex: Female
  Weight: 60.33 kg

DRUGS (2)
  1. REVLIMID [Suspect]
     Indication: MYELODYSPLASTIC SYNDROME
     Dosage: 1 IN 2 D
     Route: 048
     Dates: start: 20100325
  2. EXJADE (DEFERASIROX) [Concomitant]

REACTIONS (7)
  - Platelet count decreased [None]
  - Increased tendency to bruise [None]
  - Rash [None]
  - Diarrhoea [None]
  - Asthenia [None]
  - Gastric disorder [None]
  - Fall [None]
